FAERS Safety Report 6267692-6 (Version None)
Quarter: 2009Q3

REPORT INFORMATION
  Report Type: 
  Country: None (occurrence: None)
  Receive Date: 20090714
  Receipt Date: 20090708
  Transmission Date: 20100115
  Serious: No
  Sender: FDA-Public Use
  Company Number: US-B.I. PHARMACEUTICALS,INC./RIDGEFIELD-2009-BP-07749BP

PATIENT
  Age: 68 Year
  Sex: Female
  Weight: 66.68 kg

DRUGS (6)
  1. SPIRIVA [Suspect]
     Indication: CHRONIC OBSTRUCTIVE PULMONARY DISEASE
     Dosage: 18 MCG
     Dates: start: 20090217, end: 20090223
  2. METFORMIN HCL [Concomitant]
     Dosage: 1000 MG
  3. SINGULAIR [Concomitant]
     Dosage: 10 MG
  4. LISINOPRIL [Concomitant]
     Dosage: 10 MG
  5. LAMICTAL [Concomitant]
  6. ZETIA [Concomitant]
     Dosage: 10 MG

REACTIONS (4)
  - CHEILITIS [None]
  - LIP SWELLING [None]
  - ORAL DISCOMFORT [None]
  - ORAL PAIN [None]
